FAERS Safety Report 20748075 (Version 5)
Quarter: 2022Q3

REPORT INFORMATION
  Report Type: Spontaneous
  Country: JP (occurrence: JP)
  Receive Date: 20220426
  Receipt Date: 20220728
  Transmission Date: 20221027
  Serious: Yes (Hospitalization, Other)
  Sender: FDA-Public Use
  Company Number: JP-BRISTOL-MYERS SQUIBB COMPANY-BMS-2022-035773

PATIENT
  Age: 74 Year
  Sex: Male
  Weight: 52.70 kg

DRUGS (16)
  1. YERVOY [Suspect]
     Active Substance: IPILIMUMAB
     Indication: Malignant melanoma
     Dosage: 195 MG
     Route: 041
     Dates: start: 20220201, end: 20220222
  2. YERVOY [Suspect]
     Active Substance: IPILIMUMAB
     Dosage: 195 MG
     Route: 041
     Dates: start: 20220322, end: 20220322
  3. OPDIVO [Suspect]
     Active Substance: NIVOLUMAB
     Indication: Malignant melanoma
     Route: 041
     Dates: start: 20220201, end: 20220222
  4. OPDIVO [Suspect]
     Active Substance: NIVOLUMAB
     Dosage: 66 COURSES
     Route: 041
     Dates: start: 20181023, end: 20220104
  5. OPDIVO [Suspect]
     Active Substance: NIVOLUMAB
     Route: 041
     Dates: start: 20220322, end: 20220322
  6. TRIMETHOPRIM [Concomitant]
     Active Substance: TRIMETHOPRIM
     Indication: Prophylaxis
     Route: 048
     Dates: start: 20220507
  7. PITAVASTATIN CALCIUM [Concomitant]
     Active Substance: PITAVASTATIN CALCIUM
     Indication: Product used for unknown indication
     Dosage: 2 MG, EVERYDAY
     Route: 048
  8. PITAVASTATIN CALCIUM [Concomitant]
     Active Substance: PITAVASTATIN CALCIUM
  9. CLOPIDOGREL [Concomitant]
     Active Substance: CLOPIDOGREL BISULFATE
     Indication: Product used for unknown indication
     Dosage: 75 MG, EVERYDAY
     Route: 048
  10. CLOPIDOGREL [Concomitant]
     Active Substance: CLOPIDOGREL BISULFATE
  11. ISOSORBIDE [Concomitant]
     Active Substance: ISOSORBIDE
     Indication: Product used for unknown indication
     Route: 048
  12. ISOSORBIDE [Concomitant]
     Active Substance: ISOSORBIDE
  13. ICOSAPENT ETHYL [Concomitant]
     Active Substance: ICOSAPENT ETHYL
     Indication: Product used for unknown indication
     Dosage: 900 MG, Q12H
     Route: 048
  14. PREDNISOLONE [Concomitant]
     Active Substance: PREDNISOLONE
     Indication: Product used for unknown indication
     Route: 041
     Dates: start: 20220416, end: 20220506
  15. PREDNISOLONE [Concomitant]
     Active Substance: PREDNISOLONE
     Route: 048
     Dates: start: 20220507
  16. FAMOTIDINE [Concomitant]
     Active Substance: FAMOTIDINE
     Indication: Prophylaxis
     Route: 048
     Dates: start: 20220507

REACTIONS (5)
  - Malaise [Recovered/Resolved]
  - Decreased appetite [Recovered/Resolved]
  - Atrial fibrillation [Not Recovered/Not Resolved]
  - Dehydration [Recovered/Resolved]
  - Diarrhoea [Recovering/Resolving]

NARRATIVE: CASE EVENT DATE: 20220227
